FAERS Safety Report 12620898 (Version 2)
Quarter: 2016Q3

REPORT INFORMATION
  Report Type: Spontaneous
  Country: GB (occurrence: GB)
  Receive Date: 20160804
  Receipt Date: 20160810
  Transmission Date: 20161109
  Serious: Yes (Other)
  Sender: FDA-Public Use
  Company Number: GB-BRISTOL-MYERS SQUIBB COMPANY-BMS-2016-063317

PATIENT
  Age: 6 Decade
  Sex: Male

DRUGS (2)
  1. KENALOG [Suspect]
     Active Substance: TRIAMCINOLONE ACETONIDE
     Indication: ARTHRALGIA
     Dosage: 20 MG, UNK
     Route: 065
     Dates: start: 20160509
  2. KENALOG [Suspect]
     Active Substance: TRIAMCINOLONE ACETONIDE
     Dosage: 20 MG, UNK
     Route: 065
     Dates: start: 20160509

REACTIONS (3)
  - Staphylococcal infection [Unknown]
  - Fall [Unknown]
  - Musculoskeletal pain [Recovered/Resolved]
